FAERS Safety Report 25367357 (Version 1)
Quarter: 2025Q2

REPORT INFORMATION
  Report Type: Spontaneous
  Country: JP (occurrence: JP)
  Receive Date: 20250528
  Receipt Date: 20250528
  Transmission Date: 20250716
  Serious: Yes (Other)
  Sender: CSL BEHRING
  Company Number: JP-CARA THERAPEUTICS, INC.-2024-00545-JP

PATIENT
  Age: 79 Year
  Sex: Female

DRUGS (1)
  1. KORSUVA [Suspect]
     Active Substance: DIFELIKEFALIN ACETATE
     Indication: Pruritus
     Dosage: 25 ?G, TIW
     Route: 042
     Dates: start: 20240426

REACTIONS (1)
  - Drug ineffective [Recovered/Resolved]
